FAERS Safety Report 17775971 (Version 1)
Quarter: 2020Q2

REPORT INFORMATION
  Report Type: Spontaneous
  Country: US (occurrence: US)
  Receive Date: 20200512
  Receipt Date: 20200512
  Transmission Date: 20200714
  Serious: No
  Sender: FDA-Public Use
  Company Number: None

PATIENT
  Age: 57 Year
  Sex: Female

DRUGS (1)
  1. SPRYCEL [Suspect]
     Active Substance: DASATINIB
     Route: 048
     Dates: start: 201711

REACTIONS (6)
  - Hypoaesthesia [None]
  - Toe amputation [None]
  - Paraesthesia [None]
  - Impaired healing [None]
  - Localised infection [None]
  - Therapy interrupted [None]

NARRATIVE: CASE EVENT DATE: 20200503
